FAERS Safety Report 16787801 (Version 1)
Quarter: 2019Q3

REPORT INFORMATION
  Report Type: Spontaneous
  Country: US (occurrence: US)
  Receive Date: 20190909
  Receipt Date: 20190909
  Transmission Date: 20191005
  Serious: Yes (Hospitalization, Other)
  Sender: FDA-Public Use
  Company Number: US-AMNEAL PHARMACEUTICALS-2019-AMRX-01797

PATIENT
  Age: 33 Year
  Sex: Female

DRUGS (2)
  1. LITHIUM. [Concomitant]
     Active Substance: LITHIUM
     Indication: BIPOLAR DISORDER
     Dosage: UNK
     Route: 065
  2. BUPROPION HYDROCHLORIDE SR [Suspect]
     Active Substance: BUPROPION HYDROCHLORIDE
     Indication: BIPOLAR DISORDER
     Dosage: UNK
     Route: 065

REACTIONS (8)
  - Haemorrhage intracranial [Unknown]
  - Epistaxis [Unknown]
  - Gingival bleeding [Unknown]
  - Menorrhagia [Unknown]
  - Thrombocytopenia [Unknown]
  - Agitation [Unknown]
  - Subdural haematoma [Unknown]
  - Ecchymosis [Unknown]
